FAERS Safety Report 4860861-9 (Version None)
Quarter: 2005Q4

REPORT INFORMATION
  Report Type: 
  Country: None (occurrence: None)
  Receive Date: 20051220
  Receipt Date: 20051209
  Transmission Date: 20060501
  Serious: Yes (Other)
  Sender: FDA-Public Use
  Company Number: CA-BRISTOL-MYERS SQUIBB COMPANY-13218078

PATIENT
  Age: 84 Year
  Sex: Female

DRUGS (11)
  1. TEQUIN [Suspect]
  2. ASPIRIN [Concomitant]
     Route: 048
  3. OXYCODONE AND ACETAMINOPHEN [Concomitant]
     Route: 048
  4. LIPITOR [Concomitant]
     Route: 048
  5. LISINOPRIL [Concomitant]
     Route: 048
  6. LORAZEPAM [Concomitant]
     Route: 048
  7. METOPROLOL [Concomitant]
     Route: 048
  8. NORVASC [Concomitant]
     Route: 048
  9. PAROXETINE HCL [Concomitant]
     Route: 048
  10. REMINYL [Concomitant]
     Route: 048
  11. ZOPICLONE [Concomitant]
     Route: 048

REACTIONS (2)
  - CEREBROVASCULAR ACCIDENT [None]
  - HYPERGLYCAEMIA [None]
